FAERS Safety Report 6259539-9 (Version None)
Quarter: 2009Q3

REPORT INFORMATION
  Report Type: 
  Country: None (occurrence: None)
  Receive Date: 20090706
  Receipt Date: 20090706
  Transmission Date: 20100115
  Serious: Yes (Death, Life-Threatening)
  Sender: FDA-Public Use
  Company Number: None

PATIENT
  Age: 53 Year
  Sex: Male
  Weight: 79.3795 kg

DRUGS (1)
  1. LISTERINE GENERIC LISTERINE [Suspect]
     Indication: BREATH ODOUR
     Dosage: 1 OZ THREE A DAY RINSED MOUTH UNTIL DIAGNOSED WITH CANCER
     Route: 048
     Dates: start: 19690101, end: 20070701

REACTIONS (2)
  - LIP AND/OR ORAL CAVITY CANCER [None]
  - WRONG TECHNIQUE IN DRUG USAGE PROCESS [None]
